FAERS Safety Report 25664775 (Version 1)
Quarter: 2025Q3

REPORT INFORMATION
  Report Type: Spontaneous
  Country: US (occurrence: None)
  Receive Date: 20250808
  Receipt Date: 20250808
  Transmission Date: 20251020
  Serious: No
  Sender: FDA-CTU
  Company Number: None

PATIENT
  Age: 50 Year
  Sex: Male

DRUGS (1)
  1. RAYALDEE [Suspect]
     Active Substance: CALCIFEDIOL
     Indication: Hyperparathyroidism secondary
     Dosage: 30 UG MICROGRM(S)  DAILY ORAL ?
     Route: 048
     Dates: start: 20250211

REACTIONS (2)
  - Blood disorder [None]
  - Therapy interrupted [None]

NARRATIVE: CASE EVENT DATE: 20250625
